FAERS Safety Report 6367233-9 (Version None)
Quarter: 2009Q3

REPORT INFORMATION
  Report Type: 
  Country: None (occurrence: None)
  Receive Date: 20090921
  Receipt Date: 20090911
  Transmission Date: 20100115
  Serious: Yes (Other)
  Sender: FDA-Public Use
  Company Number: FI-BAYER-200931874GPV

PATIENT
  Age: 48 Year
  Sex: Female

DRUGS (2)
  1. MIRENA [Suspect]
     Indication: MENSTRUAL DISORDER
     Route: 015
     Dates: start: 20030101, end: 20080101
  2. MIRENA [Suspect]
     Route: 015
     Dates: start: 20080101, end: 20090602

REACTIONS (2)
  - ENDOMETRIAL CANCER STAGE I [None]
  - GENITAL HAEMORRHAGE [None]
